FAERS Safety Report 6093011-4 (Version None)
Quarter: 2009Q1

REPORT INFORMATION
  Report Type: 
  Country: None (occurrence: None)
  Receive Date: 20090224
  Receipt Date: 20090213
  Transmission Date: 20090719
  Serious: Yes (Other)
  Sender: FDA-Public Use
  Company Number: 2009AP000549

PATIENT
  Sex: Female

DRUGS (8)
  1. DILT-CD [Suspect]
     Indication: ATRIAL FIBRILLATION
     Dosage: 180 MG;QD;PO
     Route: 048
     Dates: start: 20080701
  2. LISINOPRIL [Concomitant]
  3. ATORVASTATIN CALCIUM [Concomitant]
  4. GABAPENTIN [Concomitant]
  5. WARFARIN SODIUM [Concomitant]
  6. LEVOTHYROXINE SODIUM [Concomitant]
  7. FLUTICASONE PROPIONATE [Concomitant]
  8. ERGOCALCIFEROL [Concomitant]

REACTIONS (2)
  - ATRIAL FIBRILLATION [None]
  - DRUG INEFFECTIVE FOR UNAPPROVED INDICATION [None]
